FAERS Safety Report 7821677-4 (Version None)
Quarter: 2011Q4

REPORT INFORMATION
  Report Type: 
  Country: None (occurrence: None)
  Receive Date: 20111018
  Receipt Date: 20111013
  Transmission Date: 20120403
  Serious: Yes (Disabling, Other)
  Sender: FDA-Public Use
  Company Number: US-PFIZER INC-2011245802

PATIENT

DRUGS (4)
  1. LIPITOR [Suspect]
     Dosage: UNK
  2. NORVASC [Suspect]
     Dosage: UNK
  3. NEURONTIN [Suspect]
     Dosage: UNK
  4. XANAX [Suspect]
     Dosage: UNK

REACTIONS (5)
  - DIABETES MELLITUS [None]
  - BLINDNESS [None]
  - BLOOD GLUCOSE INCREASED [None]
  - RENAL FAILURE [None]
  - EYE OPERATION [None]
